FAERS Safety Report 15967949 (Version 1)
Quarter: 2019Q1

REPORT INFORMATION
  Report Type: Spontaneous
  Country: US (occurrence: US)
  Receive Date: 20190215
  Receipt Date: 20190215
  Transmission Date: 20190418
  Serious: Yes (Hospitalization)
  Sender: FDA-Public Use
  Company Number: None

PATIENT
  Age: 39 Year
  Sex: Male

DRUGS (2)
  1. TACROLIMUS. [Suspect]
     Active Substance: TACROLIMUS
     Indication: RENAL TRANSPLANT
     Dates: start: 20181101
  2. MYCOPHENOLATE 180MG DR [Concomitant]
     Active Substance: MYCOPHENOLIC ACID

REACTIONS (1)
  - Renal disorder [None]

NARRATIVE: CASE EVENT DATE: 20190131
